FAERS Safety Report 21400467 (Version 1)
Quarter: 2022Q4

REPORT INFORMATION
  Report Type: Spontaneous
  Country: JP (occurrence: JP)
  Receive Date: 20221003
  Receipt Date: 20221003
  Transmission Date: 20230112
  Serious: Yes (Other)
  Sender: FDA-Public Use
  Company Number: JP-NOVARTISPH-NVSJ2022JP098252

PATIENT
  Age: 4 Year
  Sex: Female

DRUGS (1)
  1. ILARIS [Suspect]
     Active Substance: CANAKINUMAB
     Indication: Still^s disease
     Dosage: UNK
     Route: 058
     Dates: start: 20190215, end: 20190703

REACTIONS (4)
  - Hepatitis acute [Unknown]
  - Cholecystitis acute [Unknown]
  - Pancreatitis acute [Unknown]
  - Epstein-Barr virus infection [Unknown]
